FAERS Safety Report 17821802 (Version 1)
Quarter: 2020Q2

REPORT INFORMATION
  Report Type: Spontaneous
  Country: TH (occurrence: TH)
  Receive Date: 20200525
  Receipt Date: 20200525
  Transmission Date: 20200714
  Serious: Yes (Death, Hospitalization)
  Sender: FDA-Public Use
  Company Number: TH-BAXTER-2020BAX010371

PATIENT
  Age: 91 Year
  Sex: Male

DRUGS (1)
  1. DIANEAL LOW CALCIUM PERITONEAL DIALYSIS SOLUTION WITH DEXTROSE [Suspect]
     Active Substance: CALCIUM CHLORIDE\DEXTROSE\MAGNESIUM CHLORIDE\SODIUM CHLORIDE\SODIUM LACTATE
     Indication: PERITONEAL DIALYSIS
     Dosage: FILL 2 LITERS, 2 BAGS
     Route: 033
     Dates: start: 20200407, end: 20200508

REACTIONS (3)
  - Pyrexia [Unknown]
  - Sepsis [Fatal]
  - Peritoneal cloudy effluent [Unknown]

NARRATIVE: CASE EVENT DATE: 20200508
